FAERS Safety Report 5713226-1 (Version None)
Quarter: 2008Q2

REPORT INFORMATION
  Report Type: 
  Country: None (occurrence: None)
  Receive Date: 20080422
  Receipt Date: 19981119
  Transmission Date: 20081010
  Serious: Yes (Death, Hospitalization)
  Sender: FDA-Public Use
  Company Number: JP-ROCHE-109551

PATIENT
  Sex: Male
  Weight: 100 kg

DRUGS (9)
  1. MYCOPHENOLATE MOFETIL [Suspect]
     Route: 048
     Dates: start: 19970929, end: 19981114
  2. MYCOPHENOLATE MOFETIL [Suspect]
     Route: 048
     Dates: start: 19931028, end: 19931224
  3. MYCOPHENOLATE MOFETIL [Suspect]
     Route: 048
     Dates: start: 19940117, end: 19940601
  4. MYCOPHENOLATE MOFETIL [Suspect]
     Route: 048
     Dates: start: 19940701, end: 19941219
  5. MYCOPHENOLATE MOFETIL [Suspect]
     Route: 048
     Dates: start: 19941220
  6. MYCOPHENOLATE MOFETIL [Suspect]
     Dosage: AT AN UNSPECIFIED DATE BETWEEN 20 DEC 1994 AND 16 AUG 1997, MYCOPHENOLATE MOFETIL DOSE WAS 'INCREAS+
     Route: 048
  7. MYCOPHENOLATE MOFETIL [Suspect]
     Route: 048
     Dates: start: 19970816
  8. CYCLOSPORINE [Concomitant]
     Indication: IMMUNOSUPPRESSION
     Route: 048
     Dates: start: 19931028, end: 19981114
  9. PREDNISOLONE [Concomitant]
     Indication: IMMUNOSUPPRESSION
     Route: 048
     Dates: start: 19931028, end: 19981114

REACTIONS (4)
  - BRONCHITIS [None]
  - DEATH [None]
  - DIARRHOEA [None]
  - PNEUMONIA BACTERIAL [None]
